FAERS Safety Report 4654776-9 (Version None)
Quarter: 2005Q2

REPORT INFORMATION
  Report Type: 
  Country: None (occurrence: None)
  Receive Date: 20050506
  Receipt Date: 20050426
  Transmission Date: 20051028
  Serious: Yes (Other)
  Sender: FDA-Public Use
  Company Number: JP-ROCHE-402958

PATIENT
  Age: 3 Year
  Sex: Female

DRUGS (4)
  1. HORIZON [Suspect]
     Route: 042
     Dates: start: 20020208, end: 20020208
  2. CEFZON [Suspect]
     Indication: INFLUENZA
     Route: 048
     Dates: start: 20020208, end: 20020208
  3. CALONAL [Suspect]
     Indication: INFLUENZA
     Route: 048
     Dates: start: 20020208, end: 20020208
  4. SYMMETREL [Suspect]
     Indication: INFLUENZA
     Route: 048
     Dates: start: 20020208, end: 20020208

REACTIONS (4)
  - BLOOD GLUCOSE INCREASED [None]
  - ENCEPHALOPATHY [None]
  - STATUS EPILEPTICUS [None]
  - VOMITING [None]
